FAERS Safety Report 7234040-4 (Version None)
Quarter: 2011Q1

REPORT INFORMATION
  Report Type: 
  Country: None (occurrence: None)
  Receive Date: 20110119
  Receipt Date: 20110110
  Transmission Date: 20110831
  Serious: Yes (Hospitalization)
  Sender: FDA-Public Use
  Company Number: FR-ASTRAZENECA-2011SE01903

PATIENT
  Age: 26499 Day
  Sex: Female

DRUGS (6)
  1. EUPRESSYL [Suspect]
     Indication: HYPERTENSION
     Route: 048
  2. CRESTOR [Suspect]
     Indication: HYPERCHOLESTEROLAEMIA
     Route: 048
     Dates: end: 20100724
  3. ZANIDIP [Suspect]
     Indication: HYPERTENSION
     Route: 048
  4. ATENOLOL [Suspect]
     Indication: HYPERTENSION
     Route: 048
  5. LASIX [Suspect]
     Route: 048
  6. PEPDINE [Suspect]
     Route: 048

REACTIONS (5)
  - BRONCHOSPASM [None]
  - RALES [None]
  - DYSURIA [None]
  - VOMITING [None]
  - BACK PAIN [None]
